FAERS Safety Report 11752386 (Version 1)
Quarter: 2015Q4

REPORT INFORMATION
  Report Type: Spontaneous
  Country: US (occurrence: US)
  Receive Date: 20151118
  Receipt Date: 20151118
  Transmission Date: 20160304
  Serious: Yes (Other)
  Sender: FDA-Public Use
  Company Number: PHHY2015US149747

PATIENT
  Age: 60 Year
  Sex: Female

DRUGS (2)
  1. I-131 IODINATED ALBUMIN [Concomitant]
     Indication: THYROGLOBULIN INCREASED
     Route: 065
  2. PAZOPANIB [Suspect]
     Active Substance: PAZOPANIB
     Indication: THYROID CANCER
     Dosage: UNK
     Route: 065

REACTIONS (2)
  - Transaminases increased [Unknown]
  - Product use issue [Unknown]
